FAERS Safety Report 12194992 (Version 1)
Quarter: 2016Q1

REPORT INFORMATION
  Report Type: Report from Study
  Country: VE (occurrence: VE)
  Receive Date: 20160321
  Receipt Date: 20160321
  Transmission Date: 20160526
  Serious: Yes (Hospitalization, Other)
  Sender: FDA-Public Use
  Company Number: VE-BIOGEN-2016BI00206889

PATIENT
  Age: 28 Year
  Sex: Female
  Weight: 60 kg

DRUGS (5)
  1. ISONIAZID. [Concomitant]
     Active Substance: ISONIAZID
     Indication: TUBERCULIN TEST POSITIVE
     Route: 048
     Dates: start: 201504, end: 201512
  2. TIZANIDINE. [Concomitant]
     Active Substance: TIZANIDINE
     Indication: INSOMNIA
     Route: 048
     Dates: start: 201412, end: 201512
  3. TYSABRI [Suspect]
     Active Substance: NATALIZUMAB
     Indication: RELAPSING-REMITTING MULTIPLE SCLEROSIS
     Route: 042
     Dates: start: 201509, end: 201511
  4. TYSABRI [Suspect]
     Active Substance: NATALIZUMAB
     Route: 042
     Dates: start: 20160203
  5. GABAPENTIN. [Concomitant]
     Active Substance: GABAPENTIN
     Indication: NEURALGIA
     Route: 048
     Dates: start: 201507, end: 201512

REACTIONS (5)
  - Generalised tonic-clonic seizure [Not Recovered/Not Resolved]
  - Headache [Not Recovered/Not Resolved]
  - Multiple sclerosis [Unknown]
  - Drug-induced liver injury [Not Recovered/Not Resolved]
  - Rash pruritic [Not Recovered/Not Resolved]

NARRATIVE: CASE EVENT DATE: 20151203
